FAERS Safety Report 9927444 (Version 1)
Quarter: 2014Q1

REPORT INFORMATION
  Report Type: Spontaneous
  Country: US (occurrence: US)
  Receive Date: 20140227
  Receipt Date: 20140227
  Transmission Date: 20141002
  Serious: No
  Sender: FDA-Public Use
  Company Number: US-009507513-1402USA011021

PATIENT
  Age: 64 Year
  Sex: Female

DRUGS (5)
  1. ASMANEX TWISTHALER [Suspect]
     Indication: ASTHMA
     Dosage: 220 MICROGRAM ONCE IN THE MORNING
     Route: 055
     Dates: start: 20140207
  2. SYNTHROID [Concomitant]
  3. ASPIRIN [Concomitant]
  4. SERTRALINE HYDROCHLORIDE [Concomitant]
  5. VITAMINS (UNSPECIFIED) [Concomitant]

REACTIONS (4)
  - Rhinorrhoea [Not Recovered/Not Resolved]
  - Oropharyngeal pain [Not Recovered/Not Resolved]
  - Cough [Not Recovered/Not Resolved]
  - Wrong technique in drug usage process [Unknown]
